FAERS Safety Report 15680563 (Version 1)
Quarter: 2018Q4

REPORT INFORMATION
  Report Type: Spontaneous
  Country: US (occurrence: US)
  Receive Date: 20181202
  Receipt Date: 20181202
  Transmission Date: 20190205
  Serious: Yes (Other)
  Sender: FDA-Public Use
  Company Number: None

PATIENT
  Age: 52 Year
  Sex: Female
  Weight: 66.6 kg

DRUGS (11)
  1. IBUPROFEN. [Concomitant]
     Active Substance: IBUPROFEN
  2. LION^S MAIN MISHROOMS [Concomitant]
  3. TURMERIC [Concomitant]
     Active Substance: HERBALS\TURMERIC
  4. MAGNESIUM [Concomitant]
     Active Substance: MAGNESIUM
  5. IODINE. [Concomitant]
     Active Substance: IODINE
  6. VITAMIN D [Concomitant]
     Active Substance: CHOLECALCIFEROL
  7. RAW CACAO [Concomitant]
  8. BEE POLLEN [Concomitant]
     Active Substance: BEE POLLEN
  9. RIZATRIPTAN BENZOATE ORALLY DISINTEGRATING TAB [Suspect]
     Active Substance: RIZATRIPTAN BENZOATE
     Indication: MIGRAINE
     Dosage: ?          QUANTITY:1 TABLET(S);?
     Route: 060
  10. COPAXONE [Concomitant]
     Active Substance: GLATIRAMER ACETATE
  11. PHENEGREN [Concomitant]

REACTIONS (3)
  - Depression [None]
  - Confusional state [None]
  - Suicidal ideation [None]

NARRATIVE: CASE EVENT DATE: 20181101
